FAERS Safety Report 19044597 (Version 1)
Quarter: 2021Q1

REPORT INFORMATION
  Report Type: Spontaneous
  Country: US (occurrence: US)
  Receive Date: 20210323
  Receipt Date: 20210323
  Transmission Date: 20210420
  Serious: No
  Sender: FDA-Public Use
  Company Number: None

PATIENT
  Age: 63 Year
  Sex: Female
  Weight: 69.75 kg

DRUGS (10)
  1. EZETIMIBE. [Suspect]
     Active Substance: EZETIMIBE
     Indication: BLOOD CHOLESTEROL
     Dosage: ?          QUANTITY:1 TABLET(S);?
     Route: 048
     Dates: start: 20210113, end: 20210228
  2. LO LO ESTREN FE [Concomitant]
  3. CYCLOSPORIN 50MG [Concomitant]
     Active Substance: CYCLOSPORINE
  4. NADOLOL 20MG [Concomitant]
  5. HYDROTHOCHLORIAZIDE 25MG [Concomitant]
  6. ZINC 22MG [Concomitant]
  7. LAVABUTEROL INHALER [Concomitant]
  8. OLMESARTIN 40MG [Concomitant]
  9. VITAMIN D 10,000IU [Concomitant]
  10. ALLEGRA [Concomitant]
     Active Substance: FEXOFENADINE HYDROCHLORIDE

REACTIONS (2)
  - Alopecia [None]
  - Drug ineffective [None]

NARRATIVE: CASE EVENT DATE: 20210228
